FAERS Safety Report 25407884 (Version 2)
Quarter: 2025Q2

REPORT INFORMATION
  Report Type: Spontaneous
  Country: US (occurrence: US)
  Receive Date: 20250606
  Receipt Date: 20250609
  Transmission Date: 20250717
  Serious: No
  Sender: PFIZER
  Company Number: US-PFIZER INC-PV202500067855

PATIENT
  Age: 49 Year
  Sex: Male

DRUGS (1)
  1. VISTARIL [Suspect]
     Active Substance: HYDROXYZINE PAMOATE

REACTIONS (2)
  - Therapeutic product effect incomplete [Unknown]
  - Fatigue [Unknown]
